FAERS Safety Report 6643066-0 (Version None)
Quarter: 2010Q1

REPORT INFORMATION
  Report Type: 
  Country: None (occurrence: None)
  Receive Date: 20100319
  Receipt Date: 20100304
  Transmission Date: 20100710
  Serious: Yes (Other)
  Sender: FDA-Public Use
  Company Number: PHHY2010US09888

PATIENT
  Sex: Male

DRUGS (6)
  1. RECLAST [Suspect]
     Indication: OSTEOPOROSIS
     Dosage: 25 MIN IV INFUSION
     Dates: start: 20100202, end: 20100202
  2. CROSTOR [Concomitant]
     Indication: HYPERLIPIDAEMIA
     Dosage: 15 MG, QD
     Route: 048
  3. M.V.I. [Concomitant]
     Indication: SUPPLEMENTATION THERAPY
     Dosage: UNK
     Route: 048
  4. CARAFATE [Concomitant]
     Dosage: 1 UNK, QID
  5. NEXIUM [Concomitant]
     Dosage: 40 MG, BID
  6. NUTAMVAL [Concomitant]
     Dosage: UNK
     Route: 048

REACTIONS (11)
  - ANXIETY [None]
  - BLOOD GLUCOSE INCREASED [None]
  - CHILLS [None]
  - GLUCOSE URINE PRESENT [None]
  - HEART RATE INCREASED [None]
  - HYPERTHERMIA [None]
  - INFLUENZA LIKE ILLNESS [None]
  - LIP DRY [None]
  - LUNG INFILTRATION [None]
  - MUSCLE SPASMS [None]
  - RESPIRATORY RATE INCREASED [None]
